FAERS Safety Report 7302863-9 (Version None)
Quarter: 2011Q1

REPORT INFORMATION
  Report Type: 
  Country: None (occurrence: None)
  Receive Date: 20110218
  Receipt Date: 20110214
  Transmission Date: 20110831
  Serious: Yes (Life-Threatening, Hospitalization, Other)
  Sender: FDA-Public Use
  Company Number: US-ASTRAZENECA-2010SE01696

PATIENT
  Age: 44 Year
  Sex: Male

DRUGS (3)
  1. TOPROL-XL [Suspect]
     Route: 048
  2. NEXIUM [Suspect]
     Route: 048
  3. CRESTOR [Suspect]
     Route: 048

REACTIONS (7)
  - MYOCARDIAL INFARCTION [None]
  - DEPRESSION [None]
  - CARDIAC ARREST [None]
  - PULMONARY ARTERIOPATHY [None]
  - DEVICE OCCLUSION [None]
  - HYPERTENSION [None]
  - CORONARY ARTERY DISEASE [None]
